FAERS Safety Report 20422876 (Version 1)
Quarter: 2022Q1

REPORT INFORMATION
  Report Type: Report from Study
  Country: US (occurrence: US)
  Receive Date: 20220203
  Receipt Date: 20220203
  Transmission Date: 20220423
  Serious: Yes (Other)
  Sender: FDA-Public Use
  Company Number: US-ABBVIE-22K-163-4260623-00

PATIENT
  Sex: Female

DRUGS (5)
  1. VENCLEXTA [Suspect]
     Active Substance: VENETOCLAX
     Indication: Myelodysplastic syndrome
     Dosage: ONE PACK ORAL AS DIRECTED WITH WATER AND A MEAL AT THE SAME TIME EACH DAY; WEEK 1
     Route: 048
  2. VENCLEXTA [Suspect]
     Active Substance: VENETOCLAX
     Indication: Myeloproliferative neoplasm
     Dosage: ONE PACK ORAL AS DIRECTED WITH WATER AND A MEAL AT THE SAME TIME EACH DAY; WEEK 2
     Route: 048
  3. VENCLEXTA [Suspect]
     Active Substance: VENETOCLAX
     Dosage: ONE PACK ORAL AS DIRECTED WITH WATER AND A MEAL AT THE SAME TIME EACH DAY; WEEK 3
     Route: 048
  4. VENCLEXTA [Suspect]
     Active Substance: VENETOCLAX
     Dosage: ONE PACK ORAL AS DIRECTED WITH WATER AND A MEAL AT THE SAME TIME EACH DAY; WEEK 4
     Route: 048
  5. VENCLEXTA [Suspect]
     Active Substance: VENETOCLAX
     Dosage: ONE PACK ORAL AS DIRECTED WITH WATER AND A MEAL AT THE SAME TIME EACH DAY; WEEK 5 RAMP-UP
     Route: 048

REACTIONS (3)
  - Gastric cancer [Unknown]
  - Leukaemia [Unknown]
  - Off label use [Unknown]
